FAERS Safety Report 23144580 (Version 1)
Quarter: 2023Q4

REPORT INFORMATION
  Report Type: Spontaneous
  Country: US (occurrence: US)
  Receive Date: 20231103
  Receipt Date: 20231103
  Transmission Date: 20240110
  Serious: Yes (Other)
  Sender: FDA-Public Use
  Company Number: US-INCYTE CORPORATION-2023IN011355

PATIENT

DRUGS (1)
  1. JAKAFI [Suspect]
     Active Substance: RUXOLITINIB
     Dosage: 10 MG IN THE MORNING AND 5 MG IN EVENING
     Route: 048

REACTIONS (3)
  - Pneumonia [Unknown]
  - Neutrophil count decreased [Unknown]
  - Off label use [Unknown]
